FAERS Safety Report 17499925 (Version 2)
Quarter: 2022Q2

REPORT INFORMATION
  Report Type: Spontaneous
  Country: FR (occurrence: FR)
  Receive Date: 20200305
  Receipt Date: 20220506
  Transmission Date: 20220721
  Serious: Yes (Hospitalization)
  Sender: FDA-Public Use
  Company Number: FR-ACTAVIS-2014-10278

PATIENT
  Age: 70 Year
  Sex: Male
  Weight: 86 kg

DRUGS (25)
  1. PAROXETINE [Suspect]
     Active Substance: PAROXETINE
     Dosage: UNK
     Route: 065
  2. GABAPENTIN [Suspect]
     Active Substance: GABAPENTIN
     Indication: Product used for unknown indication
     Dosage: 600 MILLIGRAM
     Route: 048
     Dates: start: 20120903, end: 20120903
  3. HEPARIN SODIUM [Suspect]
     Active Substance: HEPARIN SODIUM
     Indication: Extracorporeal circulation
     Dosage: 20000 UI + 11000 (BOLUS)
     Route: 040
     Dates: start: 20120903, end: 20120903
  4. KETAMINE [Suspect]
     Active Substance: KETAMINE
     Indication: Anaesthesia
     Dosage: UNK
     Route: 042
     Dates: start: 20120903, end: 20120903
  5. ROCURONIUM BROMIDE [Suspect]
     Active Substance: ROCURONIUM BROMIDE
     Indication: Anaesthesia
     Dosage: UNK
     Route: 042
     Dates: start: 20120903, end: 20120903
  6. CEFUROXIME [Suspect]
     Active Substance: CEFUROXIME
     Indication: Anaesthesia
     Dosage: UNK
     Route: 042
     Dates: start: 20120903, end: 20120903
  7. PROTAMINE [Suspect]
     Active Substance: PROTAMINE
     Indication: Product used for unknown indication
     Dosage: 260 MILLIGRAM
     Route: 042
     Dates: start: 20120903, end: 20120903
  8. TRANEXAMIC ACID [Suspect]
     Active Substance: TRANEXAMIC ACID
     Indication: Haemorrhage prophylaxis
     Dosage: 2 MILLIGRAM
     Route: 040
     Dates: start: 20120903, end: 20120903
  9. ATARAX [Suspect]
     Active Substance: HYDROXYZINE HYDROCHLORIDE
     Indication: Anxiety
     Dosage: 50 MG AND 75 MG DAILY
     Route: 048
     Dates: start: 20120902, end: 20120903
  10. MIDAZOLAM HYDROCHLORIDE [Suspect]
     Active Substance: MIDAZOLAM HYDROCHLORIDE
     Indication: Anaesthesia
     Dosage: UNK
     Route: 042
     Dates: start: 20120903, end: 20120903
  11. ULTIVA [Suspect]
     Active Substance: REMIFENTANIL HYDROCHLORIDE
     Indication: Anaesthesia
     Dosage: UNK
     Route: 042
     Dates: start: 20120903, end: 20120903
  12. PROPOFOL LIPURO [Suspect]
     Active Substance: PROPOFOL
     Indication: Anaesthesia
     Dosage: UNK
     Route: 042
     Dates: start: 20120903, end: 20120903
  13. PYGEUM [Suspect]
     Active Substance: PYGEUM
     Indication: Micturition disorder
     Dosage: 50 MG, BID
     Route: 048
     Dates: end: 20120903
  14. PYGEUM [Suspect]
     Active Substance: PYGEUM
     Indication: Anaesthesia
     Dosage: 2 DOSAGE FORM
     Route: 048
     Dates: end: 20120903
  15. GINKGO [Suspect]
     Active Substance: GINKGO
     Indication: Cognitive disorder
     Dosage: 40 MG, TID
     Route: 048
     Dates: end: 20120903
  16. GINKGO [Suspect]
     Active Substance: GINKGO
     Dosage: 9 DOSAGE FORM, ONCE A DAY
     Route: 048
     Dates: end: 20120903
  17. BROMAZEPAM [Suspect]
     Active Substance: BROMAZEPAM
     Indication: Anxiety
     Dosage: 1.5 MILLIGRAM
     Route: 048
     Dates: end: 20120903
  18. BROMAZEPAM [Suspect]
     Active Substance: BROMAZEPAM
     Indication: Micturition disorder
  19. EPHEDRINE HYDROCHLORIDE [Suspect]
     Active Substance: EPHEDRINE HYDROCHLORIDE
     Indication: Anaesthesia
     Dosage: UNK
     Route: 041
     Dates: start: 20120903, end: 20120903
  20. ESOMEPRAZOLE [Concomitant]
     Active Substance: ESOMEPRAZOLE
     Indication: Prophylaxis against gastrointestinal ulcer
     Dosage: 1 DF, DAILY
     Route: 048
     Dates: start: 20120902, end: 20120922
  21. THIAMINE [Concomitant]
     Active Substance: THIAMINE
     Indication: Product used for unknown indication
     Dosage: 2 DOSAGE FORM, ONCE A DAY
     Route: 048
  22. Carbosymag [Concomitant]
     Indication: Product used for unknown indication
     Dosage: 0.25 DOSAGE FORM, ONCE A DAY
     Route: 048
  23. DUPHALAC [Concomitant]
     Active Substance: LACTULOSE
     Indication: Product used for unknown indication
     Dosage: 20 MILLIGRAM, ONCE A DAY
     Route: 065
  24. ZOCOR [Concomitant]
     Active Substance: SIMVASTATIN
     Indication: Product used for unknown indication
     Dosage: 20 MILLIGRAM, ONCE A DAY
     Route: 065
  25. LACTULOSE\PARAFFIN [Concomitant]
     Active Substance: LACTULOSE\PARAFFIN
     Indication: Product used for unknown indication

REACTIONS (4)
  - Cardio-respiratory arrest [Recovered/Resolved with Sequelae]
  - Incision site haemorrhage [Recovered/Resolved]
  - Pericardial haemorrhage [Recovered/Resolved]
  - Cardiac tamponade [Recovered/Resolved]

NARRATIVE: CASE EVENT DATE: 20120903
